FAERS Safety Report 9474992 (Version 1)
Quarter: 2013Q3

REPORT INFORMATION
  Report Type: Spontaneous
  Country: US (occurrence: None)
  Receive Date: 20130822
  Receipt Date: 20130822
  Transmission Date: 20140515
  Serious: Yes (Disabling, Other)
  Sender: FDA-Public Use
  Company Number: None

PATIENT
  Age: 53 Year
  Sex: Female
  Weight: 61.24 kg

DRUGS (14)
  1. HYDROCODON - ACETAMINOPHEN [Suspect]
     Indication: NERVE INJURY
     Dosage: STRENGTH:  10 MG HYDRO; 325 MG ACETEM ?QUANTITY:  1 TABLET?FREQUENCY:  EVERY 4 HOURS?HOW:  ORALLY?STILL TAKING (MANY)
     Route: 048
     Dates: start: 20130726
  2. HYDROCODON - ACETAMINOPHEN [Suspect]
     Indication: PAIN IN EXTREMITY
     Dosage: STRENGTH:  10 MG HYDRO; 325 MG ACETEM ?QUANTITY:  1 TABLET?FREQUENCY:  EVERY 4 HOURS?HOW:  ORALLY?STILL TAKING (MANY)
     Route: 048
     Dates: start: 20130726
  3. VALIUM [Concomitant]
  4. ZOLOFT [Concomitant]
  5. ESTRADIOL [Concomitant]
  6. PROGESTERONE [Concomitant]
  7. MULTI-VITAMINS [Concomitant]
  8. OMEGA-3S [Concomitant]
  9. VITAMIN D [Concomitant]
  10. DHEA [Concomitant]
  11. L-CARNITINE [Concomitant]
  12. COQ-10 [Concomitant]
  13. RESVERATROL [Concomitant]
  14. HTP-5 [Concomitant]

REACTIONS (3)
  - Inadequate analgesia [None]
  - Product substitution issue [None]
  - Product counterfeit [None]
